FAERS Safety Report 13120453 (Version 1)
Quarter: 2017Q1

REPORT INFORMATION
  Report Type: Report from Study
  Country: US (occurrence: US)
  Receive Date: 20170117
  Receipt Date: 20170117
  Transmission Date: 20170428
  Serious: Yes (Death, Other)
  Sender: FDA-Public Use
  Company Number: US-GILEAD-2017-0253434

PATIENT
  Age: 84 Year
  Sex: Male

DRUGS (11)
  1. PROPYLTHIOURACIL. [Concomitant]
     Active Substance: PROPYLTHIOURACIL
  2. PANTOPRAZOLE [Concomitant]
     Active Substance: PANTOPRAZOLE SODIUM
  3. METOPROLOL. [Concomitant]
     Active Substance: METOPROLOL
  4. TRAMADOL. [Concomitant]
     Active Substance: TRAMADOL
  5. AMBRISENTAN [Suspect]
     Active Substance: AMBRISENTAN
     Indication: PULMONARY HYPERTENSION
     Dosage: 10 MG, QD
     Route: 065
     Dates: start: 20110922, end: 20161231
  6. HUMULIN NOS [Concomitant]
     Active Substance: INSULIN HUMAN
  7. VITAMIN D                          /00107901/ [Concomitant]
     Active Substance: ERGOCALCIFEROL
  8. LIPITOR [Concomitant]
     Active Substance: ATORVASTATIN CALCIUM
  9. PERFOROMIST [Concomitant]
     Active Substance: FORMOTEROL FUMARATE DIHYDRATE
  10. AGGRENOX [Concomitant]
     Active Substance: ASPIRIN\DIPYRIDAMOLE
  11. CELEBREX [Concomitant]
     Active Substance: CELECOXIB

REACTIONS (1)
  - Death [Fatal]

NARRATIVE: CASE EVENT DATE: 20170101
